FAERS Safety Report 6520699-3 (Version None)
Quarter: 2009Q4

REPORT INFORMATION
  Report Type: 
  Country: None (occurrence: None)
  Receive Date: 20091229
  Receipt Date: 20091222
  Transmission Date: 20100525
  Serious: Yes (Other)
  Sender: FDA-Public Use
  Company Number: JP-PFIZER INC-2009314471

PATIENT
  Age: 76 Year
  Sex: Male

DRUGS (3)
  1. CEFOPERAZONE SODIUM [Suspect]
  2. PROPOFOL [Concomitant]
     Indication: ANAESTHESIA
  3. SEVOFLURANE [Concomitant]
     Indication: ANAESTHESIA

REACTIONS (2)
  - ACUTE MYOCARDIAL INFARCTION [None]
  - ANAPHYLACTIC SHOCK [None]
